FAERS Safety Report 11243844 (Version 1)
Quarter: 2015Q3

REPORT INFORMATION
  Report Type: Report from Study
  Country: BE (occurrence: BE)
  Receive Date: 20150707
  Receipt Date: 20150707
  Transmission Date: 20151125
  Serious: Yes (Death, Hospitalization)
  Sender: FDA-Public Use
  Company Number: BE-ABBVIE-15P-013-1410828-00

PATIENT
  Age: 75 Year
  Sex: Male

DRUGS (4)
  1. DUODOPA [Suspect]
     Active Substance: CARBIDOPA\LEVODOPA
     Dosage: AM = 10 ML, CD = 3.7 ML/H DURING 16H, ED = 2 ML
     Route: 050
     Dates: start: 20111118, end: 20120418
  2. DUODOPA [Suspect]
     Active Substance: CARBIDOPA\LEVODOPA
     Indication: PARKINSON^S DISEASE
     Route: 050
     Dates: start: 20111114, end: 20111118
  3. DUODOPA [Suspect]
     Active Substance: CARBIDOPA\LEVODOPA
     Dosage: DOSE CONTINUOUSLY MONITORED AND ADAPTED
     Route: 050
     Dates: start: 20120408, end: 20141103
  4. DUODOPA [Suspect]
     Active Substance: CARBIDOPA\LEVODOPA
     Dosage: AM = 9 ML, CD = 4.2 ML/H DURING 16H, ED = 2.5 ML
     Route: 050
     Dates: start: 20141103

REACTIONS (2)
  - Dysphagia [Unknown]
  - Infection [Fatal]

NARRATIVE: CASE EVENT DATE: 20150611
